FAERS Safety Report 13743654 (Version 1)
Quarter: 2017Q3

REPORT INFORMATION
  Report Type: Spontaneous
  Country: GB (occurrence: GB)
  Receive Date: 20170711
  Receipt Date: 20170711
  Transmission Date: 20171127
  Serious: Yes (Hospitalization, Other)
  Sender: FDA-Public Use
  Company Number: GB-TEVA-783963ACC

PATIENT
  Age: 66 Year
  Sex: Female
  Weight: 70 kg

DRUGS (36)
  1. DERMOL [Concomitant]
     Active Substance: BENZALKONIUM CHLORIDE\CHLORHEXIDINE HYDROCHLORIDE\ISOPROPYL MYRISTATE\PARAFFIN
     Dosage: USE AS DIRECTED.
     Dates: start: 20161102
  2. E45 [Concomitant]
     Active Substance: LANOLIN\LIGHT MINERAL OIL\PARAFFIN
     Dosage: APPLY.
     Dates: start: 20150522
  3. LACRI-LUBE [Concomitant]
     Dosage: 2 DOSAGE FORMS DAILY;
     Route: 050
     Dates: start: 20170208
  4. TIOTROPIUM [Concomitant]
     Active Substance: TIOTROPIUM
     Dosage: 1 DOSAGE FORMS DAILY;
     Route: 055
     Dates: start: 20150522
  5. BUMETANIDE. [Concomitant]
     Active Substance: BUMETANIDE
     Dosage: 8 DOSAGE FORMS DAILY;
     Dates: start: 20170120
  6. CARBOMER 980 [Concomitant]
     Active Substance: CARBOMER HOMOPOLYMER TYPE C (ALLYL PENTAERYTHRITOL CROSSLINKED)
     Dosage: 8 GTT DAILY;
     Route: 050
     Dates: start: 20170208
  7. CONOTRANE [Concomitant]
     Dosage: TWICE DAILY.
     Dates: start: 20161102, end: 20170526
  8. LACTULOSE. [Concomitant]
     Active Substance: LACTULOSE
     Dosage: TWICE A DAY.
     Dates: start: 20170330
  9. NOVOMIX [Concomitant]
     Active Substance: INSULIN ASPART
     Dosage: USE AS DIRECTED.
     Dates: start: 20170524
  10. SALBUTAMOL [Concomitant]
     Active Substance: ALBUTEROL
     Dosage: 4 TIMES A DAY.
     Route: 055
     Dates: start: 20150522
  11. DIAZEPAM. [Concomitant]
     Active Substance: DIAZEPAM
     Dosage: FOUR TIMES A DAY.
     Dates: start: 20170207
  12. MACROGOL [Concomitant]
     Active Substance: POLYETHYLENE GLYCOLS
     Dosage: 2 DOSAGE FORMS DAILY;
     Dates: start: 20160909, end: 20170526
  13. METOCLOPRAMIDE. [Concomitant]
     Active Substance: METOCLOPRAMIDE
     Dosage: 30 MILLIGRAM DAILY;
     Dates: start: 20170120
  14. OXYCODONE HYDROCHLORIDE. [Concomitant]
     Active Substance: OXYCODONE HYDROCHLORIDE
     Dosage: 11.25 MILLIGRAM DAILY; 2.5MG AND 1.25MG.
     Dates: start: 20160909, end: 20170524
  15. SEVELAMER [Concomitant]
     Active Substance: SEVELAMER
     Dosage: ONCE A DAY.
     Dates: start: 20170207
  16. CHLORPHENAMINE [Concomitant]
     Active Substance: CHLORPHENIRAMINE MALEATE
     Dosage: EVERY 4-6 HOURS.
     Dates: start: 20170120
  17. GABAPENTIN. [Concomitant]
     Active Substance: GABAPENTIN
     Dosage: 4 DOSAGE FORMS DAILY;
     Dates: start: 20170207
  18. HYPROMELLOSE [Concomitant]
     Active Substance: HYPROMELLOSES
     Dosage: 3 DOSAGE FORMS DAILY;
     Dates: start: 20150522
  19. MONTELUKAST [Concomitant]
     Active Substance: MONTELUKAST SODIUM
     Dosage: 2 DOSAGE FORMS DAILY;
     Dates: start: 20170207
  20. PARACETAMOL [Concomitant]
     Active Substance: ACETAMINOPHEN
     Dosage: 4 TIMES A DAY.
     Dates: start: 20170120
  21. AMLODIPINE [Concomitant]
     Active Substance: AMLODIPINE BESYLATE
     Dosage: 1 DOSAGE FORMS DAILY;
     Dates: start: 20170207, end: 20170330
  22. DOXAZOSIN [Concomitant]
     Active Substance: DOXAZOSIN\DOXAZOSIN MESYLATE
     Dosage: TWICE DAILY.
     Dates: start: 20170207
  23. GLYCEROL [Concomitant]
     Active Substance: GLYCERIN
     Dosage: AT NIGHT.
     Dates: start: 20170207
  24. LIDOCAINE. [Concomitant]
     Active Substance: LIDOCAINE
     Dosage: 1 DOSAGE FORMS DAILY;
     Dates: start: 20161102
  25. SENNA [Concomitant]
     Active Substance: SENNA LEAF\SENNOSIDES\SENNOSIDES A AND B
     Dosage: 30 MILLIGRAM DAILY;
     Dates: start: 20170120, end: 20170330
  26. CLINDAMYCIN. [Suspect]
     Active Substance: CLINDAMYCIN
     Dates: start: 20161116
  27. FENTANYL. [Concomitant]
     Active Substance: FENTANYL
     Dosage: .3333 DOSAGE FORMS DAILY;
     Route: 062
     Dates: start: 20170207
  28. SIRDUPLA [Concomitant]
     Active Substance: FLUTICASONE PROPIONATE\SALMETEROL XINAFOATE
     Dosage: 4 DOSAGE FORMS DAILY;
     Route: 055
     Dates: start: 20151109
  29. AMIODARONE [Concomitant]
     Active Substance: AMIODARONE
     Dosage: 1 DOSAGE FORMS DAILY;
     Dates: start: 20150522
  30. ASPIRIN. [Concomitant]
     Active Substance: ASPIRIN
     Dosage: 1 DOSAGE FORMS DAILY;
     Dates: start: 20150522
  31. BISOPROLOL [Concomitant]
     Active Substance: BISOPROLOL
     Dosage: 1 DOSAGE FORMS DAILY;
     Dates: start: 20161102
  32. DAKTACORT [Concomitant]
     Active Substance: HYDROCORTISONE\MICONAZOLE NITRATE
     Dosage: 2 DOSAGE FORMS DAILY;
     Dates: start: 20170524
  33. DICLOFENACDIETHYLAMMONIUM [Concomitant]
     Dosage: THREE TIMES DAILY.
     Dates: start: 20160909
  34. HYDRALAZINE [Concomitant]
     Active Substance: HYDRALAZINE HYDROCHLORIDE
     Dosage: 2 DOSAGE FORMS DAILY;
     Dates: start: 20170207
  35. LANSOPRAZOLE. [Concomitant]
     Active Substance: LANSOPRAZOLE
     Dosage: 1 DOSAGE FORMS DAILY;
     Dates: start: 20170120
  36. PHOSPHATE ION [Concomitant]
     Active Substance: PHOSPHATE ION
     Dosage: AT NIGHT.
     Dates: start: 20170207

REACTIONS (2)
  - Dyspnoea [Unknown]
  - Hypersensitivity [Unknown]

NARRATIVE: CASE EVENT DATE: 20161116
